FAERS Safety Report 9215122 (Version 2)
Quarter: 2013Q2

REPORT INFORMATION
  Report Type: Report from Study
  Country: KR (occurrence: KR)
  Receive Date: 20130405
  Receipt Date: 20130419
  Transmission Date: 20140414
  Serious: Yes (Other)
  Sender: FDA-Public Use
  Company Number: KR-ELI_LILLY_AND_COMPANY-KR201212001255

PATIENT
  Age: 63 Year
  Sex: Female

DRUGS (1)
  1. TERIPARATIDE [Suspect]
     Indication: OSTEOPOROSIS
     Dosage: 20 UG, QD
     Route: 058
     Dates: start: 20121119

REACTIONS (6)
  - Pancreatitis [Not Recovered/Not Resolved]
  - Back pain [Recovered/Resolved]
  - Pollakiuria [Recovered/Resolved]
  - Abdominal pain [Recovering/Resolving]
  - Increased appetite [Unknown]
  - Weight increased [Unknown]
